FAERS Safety Report 4287665-2 (Version None)
Quarter: 2004Q1

REPORT INFORMATION
  Report Type: 
  Country: None (occurrence: None)
  Receive Date: 20040209
  Receipt Date: 20030822
  Transmission Date: 20041129
  Serious: No
  Sender: FDA-Public Use
  Company Number: US-GLAXOSMITHKLINE-A0423105A

PATIENT
  Age: 75 Year
  Sex: Female

DRUGS (4)
  1. PAXIL [Suspect]
     Dosage: 12.5MG PER DAY
     Route: 048
  2. LANOXIN [Concomitant]
  3. CARDIZEM [Concomitant]
  4. ATENOLOL [Concomitant]

REACTIONS (1)
  - ALOPECIA [None]
